FAERS Safety Report 18593937 (Version 1)
Quarter: 2020Q4

REPORT INFORMATION
  Report Type: Spontaneous
  Country: FR (occurrence: FR)
  Receive Date: 20201209
  Receipt Date: 20201209
  Transmission Date: 20210114
  Serious: Yes (Other)
  Sender: FDA-Public Use
  Company Number: FR-ROCHE-2725994

PATIENT
  Age: 20 Year
  Sex: Female

DRUGS (7)
  1. TERALITHE [Concomitant]
     Active Substance: LITHIUM CARBONATE
  2. DUPHALAC [Concomitant]
     Active Substance: LACTULOSE
  3. SERETIDE [Concomitant]
     Active Substance: FLUTICASONE PROPIONATE\SALMETEROL XINAFOATE
  4. VALIUM [Suspect]
     Active Substance: DIAZEPAM
     Indication: PRODUCT USED FOR UNKNOWN INDICATION
     Route: 048
  5. LEPTICUR [Concomitant]
     Active Substance: TROPATEPINE HYDROCHLORIDE
  6. LEVOTHYROX [Concomitant]
     Active Substance: LEVOTHYROXINE
  7. LOXAPAC [Concomitant]
     Active Substance: LOXAPINE

REACTIONS (1)
  - Presyncope [Recovered/Resolved]

NARRATIVE: CASE EVENT DATE: 20201119
